FAERS Safety Report 6839378-8 (Version None)
Quarter: 2010Q2

REPORT INFORMATION
  Report Type: 
  Country: None (occurrence: None)
  Receive Date: 20100629
  Receipt Date: 20100430
  Transmission Date: 20101027
  Serious: No
  Sender: FDA-Public Use
  Company Number: US-WYE-H14929310

PATIENT
  Sex: Female

DRUGS (5)
  1. PRISTIQ [Suspect]
  2. AMBIEN [Suspect]
  3. CITALOPRAM HYDROBROMIDE [Suspect]
  4. LAMICTAL [Suspect]
  5. LORAZEPAM [Suspect]

REACTIONS (7)
  - DEPRESSION [None]
  - DRUG INEFFECTIVE [None]
  - DRUG INTERACTION [None]
  - INSOMNIA [None]
  - MOBILITY DECREASED [None]
  - PANIC ATTACK [None]
  - STRESS [None]
